FAERS Safety Report 9051967 (Version 1)
Quarter: 2013Q1

REPORT INFORMATION
  Report Type: Spontaneous
  Country: CN (occurrence: CN)
  Receive Date: 20130207
  Receipt Date: 20130207
  Transmission Date: 20140127
  Serious: Yes (Other)
  Sender: FDA-Public Use
  Company Number: CN-JNJFOC-20130113960

PATIENT
  Sex: 0

DRUGS (1)
  1. INVEGA [Suspect]
     Indication: SCHIZOPHRENIA
     Route: 048

REACTIONS (10)
  - Metabolic syndrome [Unknown]
  - Blood triglycerides increased [Unknown]
  - High density lipoprotein decreased [Unknown]
  - Blood glucose increased [Unknown]
  - Blood cholesterol increased [Unknown]
  - Low density lipoprotein abnormal [Unknown]
  - Glycosylated haemoglobin increased [Unknown]
  - Hypertension [Unknown]
  - Drug ineffective [Unknown]
  - Adverse event [Unknown]
